FAERS Safety Report 4377068-4 (Version None)
Quarter: 2004Q2

REPORT INFORMATION
  Report Type: 
  Country: None (occurrence: None)
  Receive Date: 20040614
  Receipt Date: 20040601
  Transmission Date: 20050107
  Serious: Yes (Other)
  Sender: FDA-Public Use
  Company Number: US-ROCHE-369789

PATIENT
  Age: 53 Year
  Sex: Female

DRUGS (8)
  1. RIBAVIRIN [Suspect]
     Indication: HEPATITIS C
     Route: 065
     Dates: start: 20040303
  2. PEG-INTRON [Suspect]
     Indication: HEPATITIS C
     Dosage: TAKEN WEEKLY.
     Route: 058
     Dates: start: 20040303
  3. CLONIDINE HCL [Concomitant]
     Route: 048
  4. COLACE [Concomitant]
     Route: 048
  5. DURAGESIC [Concomitant]
  6. OMEPRAZOLE [Concomitant]
     Route: 048
  7. OXYCODONE AND ACETAMINOPHEN [Concomitant]
     Route: 048
  8. PAROXETINE HYDROCHLORIDE [Concomitant]
     Route: 048

REACTIONS (2)
  - ABNORMAL BEHAVIOUR [None]
  - PARKINSON'S DISEASE [None]
